FAERS Safety Report 5128652-1 (Version None)
Quarter: 2006Q4

REPORT INFORMATION
  Report Type: 
  Country: None (occurrence: None)
  Receive Date: 20061017
  Receipt Date: 20060913
  Transmission Date: 20070319
  Serious: Yes (Other)
  Sender: FDA-Public Use
  Company Number: PHFR2006GB02822

PATIENT
  Age: 29 Year
  Sex: Male

DRUGS (4)
  1. CLOZARIL [Suspect]
     Indication: SCHIZOPHRENIA
     Dosage: 25 MG/DAY
     Route: 048
     Dates: start: 20060904
  2. CLOZARIL [Suspect]
     Dosage: 150 MG/DAY
     Route: 048
     Dates: end: 20060915
  3. CLOZARIL [Suspect]
     Dosage: 75 MG/DAY
     Route: 048
     Dates: start: 20060904, end: 20060919
  4. OLANZAPINE [Concomitant]

REACTIONS (11)
  - ALANINE AMINOTRANSFERASE INCREASED [None]
  - BLOOD PRESSURE ABNORMAL [None]
  - BLOOD PRESSURE INCREASED [None]
  - DERMATITIS CONTACT [None]
  - GAMMA-GLUTAMYLTRANSFERASE INCREASED [None]
  - HEPATIC ENZYME ABNORMAL [None]
  - HEPATIC STEATOSIS [None]
  - SINUS TACHYCARDIA [None]
  - SPLENOMEGALY [None]
  - TREMOR [None]
  - URINARY TRACT INFECTION [None]
